FAERS Safety Report 5720289-6 (Version None)
Quarter: 2008Q2

REPORT INFORMATION
  Report Type: 
  Country: None (occurrence: None)
  Receive Date: 20080428
  Receipt Date: 20080417
  Transmission Date: 20081010
  Serious: No
  Sender: FDA-Public Use
  Company Number: BR-ROCHE-559863

PATIENT
  Sex: Female
  Weight: 51 kg

DRUGS (4)
  1. ROACUTAN [Suspect]
     Route: 048
     Dates: start: 20071201
  2. ROACUTAN [Suspect]
     Route: 048
     Dates: end: 20080101
  3. CONTRACEPTIVE [Concomitant]
     Indication: CONTRACEPTION
  4. 1 UNSPECIFIED DRUG [Concomitant]
     Route: 061

REACTIONS (4)
  - DRUG EXPOSURE DURING PREGNANCY [None]
  - DRY SKIN [None]
  - NO ADVERSE EVENT [None]
  - PREGNANCY [None]
